FAERS Safety Report 20804710 (Version 1)
Quarter: 2022Q2

REPORT INFORMATION
  Report Type: Other
  Country: CA (occurrence: None)
  Receive Date: 20220509
  Receipt Date: 20220509
  Transmission Date: 20220720
  Serious: Yes (Other)
  Sender: FDA-Public Use
  Company Number: CA-ROCHE-3088250

PATIENT
  Sex: Female

DRUGS (20)
  1. ACTEMRA [Suspect]
     Active Substance: TOCILIZUMAB
     Indication: Giant cell arteritis
     Dosage: DRUG DOSE FIRST ADMINISTERED IS 162 MG MILLIGRAM(S)
     Route: 058
     Dates: start: 20210401
  2. FLOVENT [Concomitant]
     Active Substance: FLUTICASONE PROPIONATE
  3. AMLODIPINE [Concomitant]
     Active Substance: AMLODIPINE BESYLATE
  4. FLUTICASONE [Concomitant]
     Active Substance: FLUTICASONE
  5. FOLIC ACID [Concomitant]
     Active Substance: FOLIC ACID
  6. HYDROCHLOROTHIAZIDE [Concomitant]
     Active Substance: HYDROCHLOROTHIAZIDE
  7. HYDROXYCHLOROQUINE [Concomitant]
     Active Substance: HYDROXYCHLOROQUINE
  8. CLARITIN [Concomitant]
     Active Substance: LORATADINE
  9. METHOTREXATE [Concomitant]
     Active Substance: METHOTREXATE
  10. MACROBID [Concomitant]
     Active Substance: NITROFURANTOIN\NITROFURANTOIN MONOHYDRATE
  11. PREVALITE [Concomitant]
     Active Substance: CHOLESTYRAMINE
  12. PANTOPRAZOLE [Concomitant]
     Active Substance: PANTOPRAZOLE
  13. RAMIPRIL [Concomitant]
     Active Substance: RAMIPRIL
  14. REFRESH CLASSIC [Concomitant]
     Active Substance: POLYVINYL ALCOHOL\POVIDONE
     Route: 047
  15. RISEDRONATE SODIUM [Concomitant]
     Active Substance: RISEDRONATE SODIUM
  16. ALBUTEROL [Concomitant]
     Active Substance: ALBUTEROL
  17. SYNTHROID [Concomitant]
     Active Substance: LEVOTHYROXINE SODIUM
  18. VITAMIN B3 [Concomitant]
     Active Substance: NIACIN
  19. WARFARIN [Concomitant]
     Active Substance: WARFARIN
  20. PREDNISONE [Concomitant]
     Active Substance: PREDNISONE

REACTIONS (2)
  - Gangrene [Unknown]
  - Postoperative wound infection [Unknown]
